FAERS Safety Report 7724353-1 (Version None)
Quarter: 2011Q3

REPORT INFORMATION
  Report Type: 
  Country: None (occurrence: None)
  Receive Date: 20110901
  Receipt Date: 20110822
  Transmission Date: 20111222
  Serious: Yes (Hospitalization, Other)
  Sender: FDA-Public Use
  Company Number: US-JNJFOC-20110705696

PATIENT
  Age: 56 Year
  Sex: Female

DRUGS (4)
  1. STELARA [Suspect]
     Indication: PSORIASIS
     Route: 058
     Dates: start: 20100402, end: 20110224
  2. AMLODIPINE [Concomitant]
     Indication: HYPERTENSION
  3. TENORMIN [Concomitant]
     Indication: HYPERTENSION
  4. ZOLOFT [Concomitant]
     Indication: DEPRESSION

REACTIONS (1)
  - MYOCARDIAL INFARCTION [None]
